FAERS Safety Report 16125480 (Version 3)
Quarter: 2019Q2

REPORT INFORMATION
  Report Type: Spontaneous
  Country: JP (occurrence: JP)
  Receive Date: 20190327
  Receipt Date: 20190413
  Transmission Date: 20190711
  Serious: Yes (Death, Other)
  Sender: FDA-Public Use
  Company Number: PHJP2019JP003697

PATIENT
  Age: 78 Year
  Sex: Male

DRUGS (1)
  1. AFINITOR [Suspect]
     Active Substance: EVEROLIMUS
     Indication: NEUROENDOCRINE TUMOUR
     Dosage: 10 MG, UNK
     Route: 048

REACTIONS (6)
  - Metastases to liver [Unknown]
  - Rash [Recovering/Resolving]
  - Toxicity to various agents [Unknown]
  - Malignant neoplasm progression [Fatal]
  - Neuroendocrine tumour [Fatal]
  - Hepatic failure [Unknown]
